FAERS Safety Report 20661260 (Version 1)
Quarter: 2022Q2

REPORT INFORMATION
  Report Type: Report from Study
  Country: US (occurrence: US)
  Receive Date: 20220401
  Receipt Date: 20220401
  Transmission Date: 20220721
  Serious: Yes (Hospitalization)
  Sender: FDA-Public Use
  Company Number: US-ACADIA PHARMACEUTICALS INC.-ACA-2022-PIM-001048

PATIENT
  Age: 75 Year
  Sex: Female

DRUGS (10)
  1. NUPLAZID [Suspect]
     Active Substance: PIMAVANSERIN TARTRATE
     Indication: Parkinson^s disease
     Dosage: 34 MILLIGRAM, QD
     Route: 048
     Dates: start: 20211001
  2. NUPLAZID [Suspect]
     Active Substance: PIMAVANSERIN TARTRATE
     Indication: Hallucination
  3. SINEMET [Concomitant]
     Active Substance: CARBIDOPA\LEVODOPA
  4. MELATONIN [Concomitant]
     Active Substance: MELATONIN
  5. AMANTADINE [Concomitant]
     Active Substance: AMANTADINE
  6. DONEPEZIL [Concomitant]
     Active Substance: DONEPEZIL
  7. DICLOFENAC [Concomitant]
     Active Substance: DICLOFENAC
  8. PANTOPRAZOLE [Concomitant]
     Active Substance: PANTOPRAZOLE
  9. ROPINIROLE [Concomitant]
     Active Substance: ROPINIROLE
  10. TRAMADOL [Concomitant]
     Active Substance: TRAMADOL

REACTIONS (3)
  - Back injury [Not Recovered/Not Resolved]
  - Confusional state [Not Recovered/Not Resolved]
  - Fall [Not Recovered/Not Resolved]

NARRATIVE: CASE EVENT DATE: 20220301
